FAERS Safety Report 11905947 (Version 1)
Quarter: 2016Q1

REPORT INFORMATION
  Report Type: Spontaneous
  Country: US (occurrence: US)
  Receive Date: 20160111
  Receipt Date: 20160111
  Transmission Date: 20160526
  Serious: Yes (Death, Hospitalization, Other)
  Sender: FDA-Public Use
  Company Number: US-CIPLA LTD.-2015US10045

PATIENT

DRUGS (10)
  1. FERROUS SULFATE [Suspect]
     Active Substance: FERROUS SULFATE\FERROUS SULFATE, DRIED
     Indication: ANAEMIA
     Route: 065
  2. IDARUBICIN [Suspect]
     Active Substance: IDARUBICIN
     Indication: OVARIAN CANCER METASTATIC
     Route: 065
  3. CARBOPLATIN. [Suspect]
     Active Substance: CARBOPLATIN
     Indication: OVARIAN CANCER STAGE III
     Dosage: SIX COURSES, CUMULATIVE DOSE OF 3500 MG
     Route: 065
  4. BUSULFAN [Suspect]
     Active Substance: BUSULFAN
     Indication: OVARIAN CANCER METASTATIC
     Dosage: UNK
     Route: 065
     Dates: start: 200304
  5. MELPHALAN [Suspect]
     Active Substance: MELPHALAN
     Indication: OVARIAN CANCER METASTATIC
     Route: 065
  6. CARBOPLATIN. [Suspect]
     Active Substance: CARBOPLATIN
     Indication: OVARIAN CANCER METASTATIC
     Dosage: AREA UNDER THE CURVE 6, CUMULATIVE DOSE OF 3320 MG
     Route: 065
     Dates: start: 200208, end: 200212
  7. CYTARABINE. [Suspect]
     Active Substance: CYTARABINE
     Indication: OVARIAN CANCER METASTATIC
     Route: 065
  8. PACLITAXEL. [Suspect]
     Active Substance: PACLITAXEL
     Indication: OVARIAN CANCER STAGE III
     Dosage: SIX COURSES, CUMULATIVE DOSE OF 1710 MG
     Route: 065
  9. FLUDARABINE [Suspect]
     Active Substance: FLUDARABINE PHOSPHATE
     Indication: OVARIAN CANCER METASTATIC
     Dosage: UNK
     Route: 065
     Dates: start: 200304
  10. ERYTHROPOIETIN SUPPLEMENTS [Suspect]
     Active Substance: ERYTHROPOIETIN
     Indication: ANAEMIA
     Route: 065

REACTIONS (15)
  - Acute myeloid leukaemia [Unknown]
  - Pneumonitis [Unknown]
  - Disease recurrence [Unknown]
  - Erythroleukaemia [Unknown]
  - Death [Fatal]
  - Febrile neutropenia [Unknown]
  - Ovarian cancer metastatic [Unknown]
  - Bicytopenia [Unknown]
  - Bone marrow toxicity [Unknown]
  - Pneumonia [Unknown]
  - Anaemia [Unknown]
  - Leiomyosarcoma [Unknown]
  - Thrombocytopenia [Unknown]
  - Haemorrhage intracranial [Unknown]
  - Metastases to liver [Unknown]

NARRATIVE: CASE EVENT DATE: 200301
